FAERS Safety Report 11981409 (Version 3)
Quarter: 2017Q4

REPORT INFORMATION
  Report Type: Spontaneous
  Country: SE (occurrence: SE)
  Receive Date: 20160130
  Receipt Date: 20171110
  Transmission Date: 20180320
  Serious: Yes (Hospitalization, Other)
  Sender: FDA-Public Use
  Company Number: SE-ABBVIE-16K-150-1540096-00

PATIENT
  Age: 63 Year
  Sex: Male

DRUGS (3)
  1. ENALAPRIL [Concomitant]
     Active Substance: ENALAPRIL
     Indication: PRODUCT USED FOR UNKNOWN INDICATION
  2. AMLODIPINE [Concomitant]
     Active Substance: AMLODIPINE BESYLATE
     Indication: PRODUCT USED FOR UNKNOWN INDICATION
  3. HUMIRA [Suspect]
     Active Substance: ADALIMUMAB
     Indication: PSORIASIS
     Route: 058
     Dates: start: 20150507, end: 20151130

REACTIONS (9)
  - Pneumocystis jirovecii pneumonia [Unknown]
  - Alveolitis [Recovering/Resolving]
  - Lung infiltration [Recovered/Resolved]
  - Alveolitis [Recovering/Resolving]
  - Pneumonia [Not Recovered/Not Resolved]
  - Psoriasis [Recovered/Resolved]
  - Fatigue [Recovering/Resolving]
  - Respiratory distress [Unknown]
  - Malaise [Unknown]

NARRATIVE: CASE EVENT DATE: 2015
